FAERS Safety Report 19892845 (Version 1)
Quarter: 2021Q3

REPORT INFORMATION
  Report Type: Other
  Country: IT (occurrence: IT)
  Receive Date: 20210929
  Receipt Date: 20210929
  Transmission Date: 20211014
  Serious: Yes (Other)
  Sender: FDA-Public Use
  Company Number: IT-ROCHE-2920086

PATIENT
  Age: 68 Year
  Sex: Male

DRUGS (13)
  1. CLEXANE [Concomitant]
     Active Substance: ENOXAPARIN SODIUM
  2. UGUROL [Concomitant]
     Active Substance: TRANEXAMIC ACID
  3. CARBOPLATIN. [Concomitant]
     Active Substance: CARBOPLATIN
     Indication: SMALL CELL CARCINOMA
     Dates: start: 20210802, end: 20210914
  4. BROTIZOLAM [Concomitant]
     Active Substance: BROTIZOLAM
  5. METFORMIN [Concomitant]
     Active Substance: METFORMIN HYDROCHLORIDE
  6. DELTACORTENE [Concomitant]
     Active Substance: PREDNISONE
  7. PURSENNIDE [Concomitant]
  8. TECENTRIQ [Suspect]
     Active Substance: ATEZOLIZUMAB
     Indication: SMALL CELL CARCINOMA
     Route: 042
     Dates: start: 20210914, end: 20210914
  9. ETOPOSIDE. [Concomitant]
     Active Substance: ETOPOSIDE
     Indication: SMALL CELL CARCINOMA
     Dates: start: 20210802, end: 20210914
  10. PANTOPRAZOLE [Concomitant]
     Active Substance: PANTOPRAZOLE
  11. MATRIFEN [Concomitant]
     Active Substance: FENTANYL
  12. ABSTRAL [Concomitant]
     Active Substance: FENTANYL CITRATE
  13. SPIRIVA [Concomitant]
     Active Substance: TIOTROPIUM BROMIDE MONOHYDRATE

REACTIONS (3)
  - Hypersensitivity [Recovered/Resolved]
  - Dyspnoea [Recovered/Resolved]
  - Feeling hot [Recovered/Resolved]

NARRATIVE: CASE EVENT DATE: 20210914
